FAERS Safety Report 12769008 (Version 1)
Quarter: 2016Q3

REPORT INFORMATION
  Report Type: Spontaneous
  Country: US (occurrence: US)
  Receive Date: 20160921
  Receipt Date: 20160921
  Transmission Date: 20161109
  Serious: No
  Sender: FDA-Public Use
  Company Number: US-ASTRAZENECA-2016SE86807

PATIENT
  Age: 47 Year
  Sex: Male
  Weight: 74.8 kg

DRUGS (10)
  1. SEROQUEL [Suspect]
     Active Substance: QUETIAPINE FUMARATE
     Indication: SLEEP DISORDER
     Route: 048
     Dates: start: 2013, end: 2014
  2. ZOFRAN [Concomitant]
     Active Substance: ONDANSETRON HYDROCHLORIDE
     Indication: NAUSEA
     Route: 048
  3. ATENOLOL. [Suspect]
     Active Substance: ATENOLOL
     Indication: HEART RATE IRREGULAR
     Route: 048
     Dates: start: 2013
  4. BABY ASPIRIN [Concomitant]
     Active Substance: ASPIRIN
     Indication: CORONARY ARTERY DISEASE
     Dosage: 81.0MG UNKNOWN
     Route: 048
     Dates: start: 2010
  5. BRONCHODILATOR [Concomitant]
     Active Substance: UNSPECIFIED INGREDIENT
     Indication: DIZZINESS
     Dosage: 3 HALF PILLS AS NEEDED
     Route: 048
  6. SEROQUEL [Suspect]
     Active Substance: QUETIAPINE FUMARATE
     Indication: SLEEP DISORDER
     Route: 048
     Dates: start: 2014, end: 20160805
  7. BABY ASPIRIN [Concomitant]
     Active Substance: ASPIRIN
     Indication: CHEST PAIN
     Dosage: 81.0MG UNKNOWN
     Route: 048
     Dates: start: 2010
  8. BABY ASPIRIN [Concomitant]
     Active Substance: ASPIRIN
     Indication: MYOCARDIAL INFARCTION
     Dosage: 81.0MG UNKNOWN
     Route: 048
     Dates: start: 2010
  9. BUTRANS [Concomitant]
     Active Substance: BUPRENORPHINE
     Indication: ABDOMINAL PAIN
     Route: 062
  10. ANTIVERT [Concomitant]
     Active Substance: MECLIZINE HYDROCHLORIDE
     Indication: DIZZINESS
     Dosage: 3 HALF PILLS AS NEEDED
     Route: 048

REACTIONS (5)
  - Sleep apnoea syndrome [Not Recovered/Not Resolved]
  - Off label use [Not Recovered/Not Resolved]
  - Insomnia [Not Recovered/Not Resolved]
  - Intentional product misuse [Not Recovered/Not Resolved]
  - Product use issue [Not Recovered/Not Resolved]

NARRATIVE: CASE EVENT DATE: 2013
